FAERS Safety Report 18227850 (Version 1)
Quarter: 2020Q3

REPORT INFORMATION
  Report Type: Report from Study
  Country: FI (occurrence: FI)
  Receive Date: 20200903
  Receipt Date: 20200903
  Transmission Date: 20201103
  Serious: Yes (Hospitalization)
  Sender: FDA-Public Use
  Company Number: NVSC2020FI240026

PATIENT
  Age: 37 Year
  Sex: Female
  Weight: 99.3 kg

DRUGS (3)
  1. HIDROXIUREA [Concomitant]
     Active Substance: HYDROXYUREA
     Indication: PRODUCT USED FOR UNKNOWN INDICATION
     Dosage: UNK
     Route: 065
  2. CRIZANLIZUMAB [Suspect]
     Active Substance: CRIZANLIZUMAB
     Indication: SICKLE CELL ANAEMIA WITH CRISIS
     Dosage: 470 MG (STRENGTH: 7.5MG/KG)
     Route: 042
     Dates: start: 20200818
  3. OXYCODONE [Concomitant]
     Active Substance: OXYCODONE
     Indication: SICKLE CELL ANAEMIA WITH CRISIS
     Dosage: UNK (INFREQUENT USE (E.G. { 4 TIMES IN A MONTH))
     Route: 065

REACTIONS (3)
  - Pyrexia [Not Recovered/Not Resolved]
  - Myalgia [Not Recovered/Not Resolved]
  - Anaemia [Not Recovered/Not Resolved]

NARRATIVE: CASE EVENT DATE: 20200825
